FAERS Safety Report 6595325-8 (Version None)
Quarter: 2010Q1

REPORT INFORMATION
  Report Type: 
  Country: None (occurrence: None)
  Receive Date: 20100219
  Receipt Date: 20100219
  Transmission Date: 20100710
  Serious: Yes (Other)
  Sender: FDA-Public Use
  Company Number: None

PATIENT
  Age: 95 Year
  Sex: Female

DRUGS (1)
  1. DOPAMINE HCL [Suspect]
     Indication: HYPOTENSION
     Dosage: 20 MCG/KG/MIN CONTINUOUS IV DRIP
     Route: 041
     Dates: start: 20090616, end: 20090616

REACTIONS (1)
  - SKIN DISCOLOURATION [None]
